FAERS Safety Report 19467015 (Version 1)
Quarter: 2021Q2

REPORT INFORMATION
  Report Type: Spontaneous
  Country: US (occurrence: US)
  Receive Date: 20210628
  Receipt Date: 20210628
  Transmission Date: 20210717
  Serious: No
  Sender: FDA-Public Use
  Company Number: US-LUNDBECK-DKLU3034098

PATIENT
  Age: 71 Year
  Sex: Male

DRUGS (1)
  1. NORTHERA [Suspect]
     Active Substance: DROXIDOPA
     Indication: ORTHOSTATIC HYPOTENSION
     Dosage: THREE TIMES EVERY DAY IN THE MORNING, AT MIDDAY, AND LATE AFTERNOON AT LEAST 3 HOURS PRIOR TO BEDTIM
     Route: 048

REACTIONS (1)
  - Treatment noncompliance [Unknown]
